FAERS Safety Report 9868224 (Version 2)
Quarter: 2014Q1

REPORT INFORMATION
  Report Type: Report from Study
  Country: CA (occurrence: CA)
  Receive Date: 20140204
  Receipt Date: 20140206
  Transmission Date: 20141002
  Serious: Yes (Life-Threatening, Hospitalization)
  Sender: FDA-Public Use
  Company Number: PHHY2014CA012252

PATIENT
  Age: 89 Year
  Sex: Female

DRUGS (14)
  1. ACLASTA [Suspect]
     Indication: OSTEOPOROSIS
     Dosage: UNK UKN, UNK
     Route: 042
     Dates: start: 20100331
  2. ACLASTA [Suspect]
     Dosage: UNK UKN, UNK
     Route: 042
     Dates: start: 20110330
  3. ACLASTA [Suspect]
     Dosage: UNK UKN, UNK
     Route: 042
     Dates: start: 20120417
  4. ACLASTA [Suspect]
     Dosage: UNK UKN, UNK
     Route: 042
     Dates: start: 20130429
  5. VITAMIN B12 [Concomitant]
     Dosage: 1 TABLET (500UG) ONCE DAILY
  6. COVERSYL [Concomitant]
     Dosage: 1 TABLET (2 MG), ONCE DAILY
  7. VITAMIN D [Concomitant]
     Dosage: 1 TABELY (1000 IU), ONCE DAILY
  8. O-CALCIUM [Concomitant]
     Dosage: 2 TABLETS (OF 500 MG), TWICE DAILY
  9. APO-ZOPICLONE [Concomitant]
     Dosage: 1 TABLET OF 5 MG EVERY DAY AT BEDTIME, PRN
  10. LANTUS [Concomitant]
     Dosage: 1X12 UNIT, QD
  11. APO-METFORMIN [Concomitant]
     Dosage: 2 TABLETS (1000 MG), QD
  12. APO-LOVASTATIN [Concomitant]
     Dosage: 1 TABLET 20 MG, QD
  13. APO-BISOPROLOL [Concomitant]
     Dosage: 1 TABLET (5 MG), ONCE DAILY
  14. ASA [Concomitant]
     Dosage: 1 TABLET (81 MG), QD

REACTIONS (4)
  - Invasive ductal breast carcinoma [Not Recovered/Not Resolved]
  - Breast mass [Not Recovered/Not Resolved]
  - Metastases to lung [Not Recovered/Not Resolved]
  - Metastases to bone [Not Recovered/Not Resolved]
